FAERS Safety Report 5589105-X (Version None)
Quarter: 2007Q4

REPORT INFORMATION
  Report Type: 
  Country: None (occurrence: None)
  Receive Date: 20071212
  Receipt Date: 20070424
  Transmission Date: 20080405
  Serious: Yes (Hospitalization)
  Sender: FDA-Public Use
  Company Number: USA-2006-0026315

PATIENT
  Age: 1 Month
  Sex: Male

DRUGS (4)
  1. OXYCONTIN [Suspect]
     Indication: DRUG EXPOSURE VIA BREAST MILK
     Dosage: TRA
     Route: 063
     Dates: start: 20061201
  2. COCAINE (COCAINE) [Suspect]
     Indication: DRUG EXPOSURE VIA BREAST MILK
     Dosage: TRA
     Route: 063
     Dates: start: 20061201
  3. XANAX [Suspect]
     Indication: DRUG EXPOSURE VIA BREAST MILK
     Dosage: TRA
     Route: 063
     Dates: start: 20061201
  4. BARBITURATES [Suspect]
     Indication: DRUG EXPOSURE VIA BREAST MILK
     Dosage: TRA
     Route: 063
     Dates: start: 20061201

REACTIONS (4)
  - CONVULSION NEONATAL [None]
  - DRUG EXPOSURE VIA BREAST MILK [None]
  - DYSPNOEA [None]
  - FEVER NEONATAL [None]
